FAERS Safety Report 18171148 (Version 1)
Quarter: 2020Q3

REPORT INFORMATION
  Report Type: Spontaneous
  Country: US (occurrence: US)
  Receive Date: 20200819
  Receipt Date: 20200819
  Transmission Date: 20201103
  Serious: No
  Sender: FDA-Public Use
  Company Number: US-OREXO US, INC.-ORE202005-000035

PATIENT
  Age: 56 Year
  Sex: Male
  Weight: 66.22 kg

DRUGS (4)
  1. FENTANYL. [Suspect]
     Active Substance: FENTANYL
     Indication: DRUG DEPENDENCE
  2. CLONIDINE. [Concomitant]
     Active Substance: CLONIDINE
  3. ZUBSOLV [Suspect]
     Active Substance: BUPRENORPHINE HYDROCHLORIDE\NALOXONE HYDROCHLORIDE
     Indication: DRUG DEPENDENCE
     Dosage: ONCE A DAY
     Route: 060
  4. CLONAZEPAM. [Concomitant]
     Active Substance: CLONAZEPAM
     Dosage: 2 MG, 2?3 TIMES DAILY
     Route: 048

REACTIONS (3)
  - Drug abuse [Unknown]
  - Drug withdrawal syndrome [Recovered/Resolved]
  - Abdominal pain upper [Recovered/Resolved]

NARRATIVE: CASE EVENT DATE: 20200504
